FAERS Safety Report 16943231 (Version 4)
Quarter: 2021Q1

REPORT INFORMATION
  Report Type: Report from Study
  Country: US (occurrence: US)
  Receive Date: 20191021
  Receipt Date: 20210125
  Transmission Date: 20210419
  Serious: Yes (Hospitalization, Other)
  Sender: FDA-Public Use
  Company Number: US-BIOGEN-2019BI00796676

PATIENT
  Sex: Female

DRUGS (2)
  1. TYSABRI [Suspect]
     Active Substance: NATALIZUMAB
     Route: 065
     Dates: start: 20120130
  2. TYSABRI [Suspect]
     Active Substance: NATALIZUMAB
     Indication: MULTIPLE SCLEROSIS
     Route: 065
     Dates: start: 20070716, end: 20111219

REACTIONS (14)
  - Vertigo [Unknown]
  - Multiple sclerosis relapse [Unknown]
  - Pelvic fracture [Unknown]
  - Pain [Unknown]
  - Spinal stenosis [Unknown]
  - Eye infection [Unknown]
  - Intervertebral disc protrusion [Unknown]
  - Meniscus injury [Unknown]
  - Arthralgia [Unknown]
  - Corneal abrasion [Unknown]
  - Joint swelling [Unknown]
  - Peripheral swelling [Unknown]
  - Blindness unilateral [Unknown]
  - Fall [Recovered/Resolved]

NARRATIVE: CASE EVENT DATE: 2014
